FAERS Safety Report 7492667-9 (Version None)
Quarter: 2011Q2

REPORT INFORMATION
  Report Type: 
  Country: None (occurrence: None)
  Receive Date: 20110519
  Receipt Date: 20110512
  Transmission Date: 20111010
  Serious: Yes (Hospitalization)
  Sender: FDA-Public Use
  Company Number: US-US-EMD SERONO, INC.-7049236

PATIENT
  Sex: Female

DRUGS (5)
  1. REBIF [Suspect]
     Route: 058
     Dates: end: 20110101
  2. REBIF [Suspect]
     Route: 058
  3. WELLBUTRIN [Concomitant]
     Dates: start: 20110401
  4. THYROID MEDICINE [Concomitant]
     Indication: THYROID DISORDER
     Dates: start: 20050101
  5. REBIF [Suspect]
     Indication: MULTIPLE SCLEROSIS
     Route: 058
     Dates: start: 20110304

REACTIONS (5)
  - MULTIPLE SCLEROSIS RELAPSE [None]
  - INSOMNIA [None]
  - TREMOR [None]
  - ABDOMINAL DISTENSION [None]
  - NERVOUSNESS [None]
